FAERS Safety Report 4660933-8 (Version None)
Quarter: 2005Q2

REPORT INFORMATION
  Report Type: 
  Country: None (occurrence: None)
  Receive Date: 20050511
  Receipt Date: 20050503
  Transmission Date: 20051028
  Serious: Yes (Death)
  Sender: FDA-Public Use
  Company Number: 2005-127959-NL

PATIENT
  Age: 84 Year
  Sex: Female

DRUGS (2)
  1. REMERON [Suspect]
  2. PROZAC [Concomitant]

REACTIONS (2)
  - ACCIDENTAL EXPOSURE [None]
  - MYOCARDIAL INFARCTION [None]
